FAERS Safety Report 22021050 (Version 2)
Quarter: 2023Q1

REPORT INFORMATION
  Report Type: Other
  Country: US (occurrence: None)
  Receive Date: 20230222
  Receipt Date: 20230316
  Transmission Date: 20230417
  Serious: Yes (Death, Hospitalization)
  Sender: FDA-Public Use
  Company Number: US-ROCHE-3291161

PATIENT
  Age: 73 Year
  Sex: Male

DRUGS (1)
  1. ESBRIET [Suspect]
     Active Substance: PIRFENIDONE
     Indication: Pneumonia
     Dosage: TAKE 3 CAPSULE BY MOUTH 3 TIMES A DAY
     Route: 048

REACTIONS (3)
  - Condition aggravated [Unknown]
  - Off label use [Unknown]
  - Death [Fatal]
